FAERS Safety Report 14235812 (Version 3)
Quarter: 2018Q2

REPORT INFORMATION
  Report Type: Report from Study
  Country: ES (occurrence: ES)
  Receive Date: 20171129
  Receipt Date: 20180503
  Transmission Date: 20180711
  Serious: Yes (Other)
  Sender: FDA-Public Use
  Company Number: ES-GLAXOSMITHKLINE-ES2017180023

PATIENT
  Age: 51 Year
  Sex: Male
  Weight: 89.3 kg

DRUGS (2)
  1. ALBIGLUTIDE [Suspect]
     Active Substance: ALBIGLUTIDE
     Dosage: 50 MG, WE
     Route: 058
     Dates: start: 20170711, end: 20171117
  2. ALBIGLUTIDE [Suspect]
     Active Substance: ALBIGLUTIDE
     Indication: TYPE 2 DIABETES MELLITUS
     Dosage: 30 MG, WE
     Route: 058
     Dates: start: 20161123, end: 20170704

REACTIONS (1)
  - Liver function test increased [Recovered/Resolved]

NARRATIVE: CASE EVENT DATE: 20171120
